FAERS Safety Report 6142181-8 (Version None)
Quarter: 2009Q2

REPORT INFORMATION
  Report Type: 
  Country: None (occurrence: None)
  Receive Date: 20090402
  Receipt Date: 20090325
  Transmission Date: 20091009
  Serious: Yes (Other)
  Sender: FDA-Public Use
  Company Number: US-GILEAD-2009-0019979

PATIENT
  Age: 25 Year
  Sex: Female

DRUGS (2)
  1. TRUVADA [Suspect]
     Indication: HIV INFECTION
     Route: 048
     Dates: start: 20081027
  2. LEXIVA [Concomitant]
     Route: 048
     Dates: start: 20081027

REACTIONS (2)
  - ABORTION SPONTANEOUS [None]
  - ULTRASOUND ANTENATAL SCREEN ABNORMAL [None]
